FAERS Safety Report 23085185 (Version 1)
Quarter: 2023Q4

REPORT INFORMATION
  Report Type: Spontaneous
  Country: US (occurrence: None)
  Receive Date: 20231019
  Receipt Date: 20231019
  Transmission Date: 20240110
  Serious: Yes (Life-Threatening)
  Sender: FDA-Public Use
  Company Number: None

PATIENT
  Age: 73 Year
  Sex: Male
  Weight: 76.5 kg

DRUGS (1)
  1. RITUXAN [Suspect]
     Active Substance: RITUXIMAB
     Indication: Chronic inflammatory demyelinating polyradiculoneuropathy
     Route: 042
     Dates: start: 20230715, end: 20230729

REACTIONS (14)
  - Cough [None]
  - Pruritus [None]
  - Pain [None]
  - Pain in extremity [None]
  - Pain in extremity [None]
  - Erythema [None]
  - Erythema [None]
  - Rash erythematous [None]
  - Rash [None]
  - Infusion related reaction [None]
  - Blood pressure decreased [None]
  - Visual impairment [None]
  - Dyspnoea [None]
  - Oxygen saturation decreased [None]

NARRATIVE: CASE EVENT DATE: 20230729
